FAERS Safety Report 16135508 (Version 1)
Quarter: 2019Q1

REPORT INFORMATION
  Report Type: Spontaneous
  Country: US (occurrence: US)
  Receive Date: 20190329
  Receipt Date: 20190329
  Transmission Date: 20190418
  Serious: No
  Sender: FDA-Public Use
  Company Number: US-SUNOVION-2019SUN001276

PATIENT
  Age: 53 Year
  Sex: Female

DRUGS (2)
  1. APTIOM [Suspect]
     Active Substance: ESLICARBAZEPINE ACETATE
     Indication: SEIZURE
     Dosage: 600 MG
     Route: 048
  2. FYCOMPA [Concomitant]
     Active Substance: PERAMPANEL
     Dosage: UNK

REACTIONS (2)
  - Urticaria [Recovered/Resolved]
  - Pruritus [Unknown]
